FAERS Safety Report 8845124 (Version 2)
Quarter: 2012Q4

REPORT INFORMATION
  Report Type: 
  Country: SI (occurrence: SI)
  Receive Date: 20121017
  Receipt Date: 20121028
  Transmission Date: 20130627
  Serious: Yes (Death)
  Sender: FDA-Public Use
  Company Number: SI-CELGENEUS-261-21880-12101307

PATIENT
  Age: 51 Year

DRUGS (4)
  1. REVLIMID [Suspect]
     Indication: LEUKAEMIA PLASMACYTIC
     Route: 048
     Dates: start: 2010
  2. VINCRISTINE [Concomitant]
     Indication: LEUKAEMIA PLASMACYTIC
     Route: 065
  3. DOXORUBICINE [Concomitant]
     Indication: LEUKAEMIA PLASMACYTIC
     Route: 065
  4. DEXAMETHASONE [Concomitant]
     Indication: LEUKAEMIA PLASMACYTIC
     Route: 065

REACTIONS (1)
  - Plasma cell leukaemia [Fatal]
